FAERS Safety Report 10057365 (Version 2)
Quarter: 2014Q2

REPORT INFORMATION
  Report Type: Spontaneous
  Country: US (occurrence: US)
  Receive Date: 20140403
  Receipt Date: 20140414
  Transmission Date: 20141212
  Serious: Yes (Hospitalization)
  Sender: FDA-Public Use
  Company Number: US-PFIZER INC-2014092852

PATIENT
  Age: 61 Year
  Sex: Male

DRUGS (13)
  1. ATRIPLA [Suspect]
     Dosage: UNK
  2. PANTOPRAZOLE [Concomitant]
     Dosage: UNK
  3. TRIMETHOPRIM, SULFAMETHOXAZOLE [Concomitant]
     Indication: PROPHYLAXIS
     Dosage: UNK
  4. AZITHROMYCIN [Concomitant]
     Dosage: UNK
  5. METOPROLOL [Concomitant]
     Dosage: UNK
  6. FLUTICASONE [Concomitant]
     Dosage: UNK
     Route: 055
  7. ALBUTEROL W/IPRATROPIUM [Concomitant]
     Dosage: UNK
     Route: 055
  8. LEVOTHYROXINE [Concomitant]
     Dosage: UNK
  9. SIMVASTATIN [Concomitant]
     Dosage: UNK
  10. CLOPIDOGREL [Concomitant]
     Dosage: UNK
  11. CALCIUM CARBONATE W/VITAMIN D NOS [Concomitant]
     Dosage: UNK
  12. HYDROXYZINE [Concomitant]
     Dosage: UNK
  13. PAROXETINE [Concomitant]
     Dosage: UNK

REACTIONS (6)
  - Renal failure acute [Recovered/Resolved]
  - Renal tubular necrosis [Recovered/Resolved]
  - Tubulointerstitial nephritis [Recovered/Resolved]
  - Hypersensitivity [Recovered/Resolved]
  - Haematuria [Recovered/Resolved]
  - Proteinuria [Recovered/Resolved]
